FAERS Safety Report 5371808-3 (Version None)
Quarter: 2007Q2

REPORT INFORMATION
  Report Type: 
  Country: None (occurrence: None)
  Receive Date: 20070627
  Receipt Date: 20070618
  Transmission Date: 20071010
  Serious: Yes (Hospitalization)
  Sender: FDA-Public Use
  Company Number: FR-BAYER-200710337BFR

PATIENT
  Age: 91 Year
  Sex: Female

DRUGS (2)
  1. CIFLOX [Suspect]
     Indication: LUNG DISORDER
     Dosage: TOTAL DAILY DOSE: 500 MG  UNIT DOSE: 250 MG
     Route: 048
     Dates: start: 20070301, end: 20070310
  2. PREVISCAN [Interacting]
     Indication: PHLEBITIS
     Dosage: UNIT DOSE: 20 MG
     Route: 048
     Dates: start: 20070227, end: 20070308

REACTIONS (5)
  - HAEMOTHORAX [None]
  - OEDEMA [None]
  - RETROPERITONEAL HAEMATOMA [None]
  - RETROPERITONEAL OEDEMA [None]
  - SUBCUTANEOUS HAEMATOMA [None]
